FAERS Safety Report 18820834 (Version 2)
Quarter: 2021Q2

REPORT INFORMATION
  Report Type: Report from Study
  Country: JP (occurrence: JP)
  Receive Date: 20210202
  Receipt Date: 20210430
  Transmission Date: 20210717
  Serious: Yes (Hospitalization, Other)
  Sender: FDA-Public Use
  Company Number: JP-GLAXOSMITHKLINE-JP2021JPN017550

PATIENT
  Age: 5 Decade
  Sex: Male
  Weight: 48 kg

DRUGS (26)
  1. MEPOLIZUMAB [Suspect]
     Active Substance: MEPOLIZUMAB
     Dosage: 300 MG
     Route: 058
     Dates: start: 20200410, end: 20200410
  2. PREDNISOLONE TABLETS [Concomitant]
     Active Substance: PREDNISOLONE
     Dosage: 4 MG, 1D
     Dates: start: 20200124, end: 20200220
  3. DAIPHEN COMBINATION TABLETS [Concomitant]
     Indication: ANTIFUNGAL PROPHYLAXIS
     Dosage: UNK
  4. PREDNISOLONE TABLETS [Concomitant]
     Active Substance: PREDNISOLONE
     Dosage: 6 MG, 1D
     Dates: start: 20191101, end: 20191128
  5. NEORAL CAPSULES [Concomitant]
     Indication: EOSINOPHILIC GRANULOMATOSIS WITH POLYANGIITIS
     Dosage: 100 MG, 1D
  6. FOLIAMIN [Concomitant]
     Active Substance: FOLIC ACID
     Dosage: UNK
  7. TAKECAB [Concomitant]
     Active Substance: VONOPRAZAN FUMARATE
     Dosage: UNK
  8. MEPOLIZUMAB [Suspect]
     Active Substance: MEPOLIZUMAB
     Dosage: 300 MG
     Route: 058
     Dates: start: 20200221, end: 20200221
  9. PREDNISOLONE TABLETS [Concomitant]
     Active Substance: PREDNISOLONE
     Dosage: 3 MG, 1D
     Dates: start: 20200221, end: 20200514
  10. PREDNISOLONE TABLETS [Concomitant]
     Active Substance: PREDNISOLONE
     Dosage: 2 MG, 1D
     Dates: start: 20200515, end: 20200611
  11. MEPOLIZUMAB [Suspect]
     Active Substance: MEPOLIZUMAB
     Dosage: 300 MG
     Route: 058
     Dates: start: 20191101, end: 20191101
  12. MEPOLIZUMAB [Suspect]
     Active Substance: MEPOLIZUMAB
     Dosage: 300 MG
     Route: 058
     Dates: start: 20191129, end: 20191129
  13. MEPOLIZUMAB [Suspect]
     Active Substance: MEPOLIZUMAB
     Dosage: 300 MG
     Route: 058
     Dates: start: 20200124, end: 20200124
  14. MEPOLIZUMAB [Suspect]
     Active Substance: MEPOLIZUMAB
     Dosage: 300 MG
     Route: 058
     Dates: start: 20200313, end: 20200313
  15. MEPOLIZUMAB [Suspect]
     Active Substance: MEPOLIZUMAB
     Dosage: 300 MG
     Route: 058
     Dates: start: 20200612, end: 20200612
  16. MEPOLIZUMAB [Suspect]
     Active Substance: MEPOLIZUMAB
     Dosage: 300 MG
     Route: 058
     Dates: start: 20200807, end: 20200807
  17. BONALON [Concomitant]
     Active Substance: ALENDRONATE SODIUM
     Dosage: UNK
  18. MEPOLIZUMAB [Suspect]
     Active Substance: MEPOLIZUMAB
     Dosage: 300 MG
     Route: 058
     Dates: start: 20200515, end: 20200515
  19. FLUTIDE [FLUTICASONE PROPIONATE] [Suspect]
     Active Substance: FLUTICASONE PROPIONATE
     Indication: ASTHMA
     Dosage: 200 ?G, 1D
     Route: 055
     Dates: start: 20200417
  20. PREDNISOLONE TABLETS [Concomitant]
     Active Substance: PREDNISOLONE
     Indication: EOSINOPHILIC GRANULOMATOSIS WITH POLYANGIITIS
     Dosage: 7 MG, 1D
     Dates: end: 20191031
  21. MEPOLIZUMAB [Suspect]
     Active Substance: MEPOLIZUMAB
     Dosage: 300 MG
     Route: 058
     Dates: start: 20200710, end: 20200710
  22. PREDNISOLONE TABLETS [Concomitant]
     Active Substance: PREDNISOLONE
     Dosage: 5 MG, 1D
     Dates: start: 20191129, end: 20200123
  23. METOLATE [Concomitant]
     Active Substance: METHOTREXATE
     Indication: EOSINOPHILIC GRANULOMATOSIS WITH POLYANGIITIS
     Dosage: 8 MG, WE
     Dates: end: 20200806
  24. MEPOLIZUMAB [Suspect]
     Active Substance: MEPOLIZUMAB
     Indication: EOSINOPHILIC GRANULOMATOSIS WITH POLYANGIITIS
     Dosage: 300 MG
     Route: 058
     Dates: start: 20191004, end: 20191004
  25. PREDNISOLONE TABLETS [Concomitant]
     Active Substance: PREDNISOLONE
     Dosage: 1 MG, 1D
     Dates: start: 20200612
  26. METOLATE [Concomitant]
     Active Substance: METHOTREXATE
     Dosage: 6 MG, WE
     Dates: start: 20200807

REACTIONS (4)
  - Influenza [Recovered/Resolved]
  - Cholangitis acute [Recovering/Resolving]
  - Inappropriate schedule of product administration [Unknown]
  - Upper respiratory tract inflammation [Recovering/Resolving]

NARRATIVE: CASE EVENT DATE: 20191225
